FAERS Safety Report 6022859-7 (Version None)
Quarter: 2008Q4

REPORT INFORMATION
  Report Type: 
  Country: None (occurrence: None)
  Receive Date: 20081230
  Receipt Date: 20080828
  Transmission Date: 20090506
  Serious: Yes (Hospitalization)
  Sender: FDA-Public Use
  Company Number: US-ABBOTT-08P-163-0473025-00

PATIENT
  Sex: Male
  Weight: 108.96 kg

DRUGS (3)
  1. OMNICEF [Suspect]
     Indication: OTITIS MEDIA
     Dates: start: 20080708, end: 20080709
  2. SIMVASTATIN [Suspect]
     Indication: MYOCARDIAL INFARCTION
     Route: 048
     Dates: start: 20080701
  3. MULTI-VITAMIN [Concomitant]
     Indication: VITAMIN SUPPLEMENTATION
     Route: 048

REACTIONS (3)
  - HEMIPARESIS [None]
  - HEPATIC ENZYME INCREASED [None]
  - MYOCARDIAL INFARCTION [None]
